FAERS Safety Report 8917510 (Version 1)
Quarter: 2012Q4

REPORT INFORMATION
  Report Type: Report from Study
  Country: NL (occurrence: NL)
  Receive Date: 20121120
  Receipt Date: 20121120
  Transmission Date: 20130627
  Serious: Yes (Hospitalization)
  Sender: FDA-Public Use
  Company Number: NL-ROCHE-1153938

PATIENT
  Age: 62 Year
  Sex: Female

DRUGS (4)
  1. RITUXIMAB [Suspect]
     Indication: DIFFUSE LARGE B-CELL LYMPHOMA
     Dosage: LAST DOSE PRIOR TO SAE: 02 NOVEMBER 2012
     Route: 042
     Dates: start: 20110827
  2. METOPROLOL [Concomitant]
     Indication: HYPERTENSION
     Dosage: LAST DOSE PRIOR TO SAE: 08 NOVEMBER 2012
     Route: 048
     Dates: start: 2000
  3. CALCICHEW [Concomitant]
     Indication: OSTEOPOROSIS
     Dosage: 500/800 LAST DOSE PRIOR TO SAE: 08 NOVEMBER 2012
     Route: 048
     Dates: start: 201105
  4. ACTONEL [Concomitant]
     Dosage: LAST DOSE PRIOR TO SAE: 08 NOVEMBER 2012
     Route: 048
     Dates: start: 201105

REACTIONS (1)
  - Peripheral arterial occlusive disease [Unknown]
